FAERS Safety Report 4352471-7 (Version None)
Quarter: 2004Q2

REPORT INFORMATION
  Report Type: 
  Country: None (occurrence: None)
  Receive Date: 20040409
  Receipt Date: 20040129
  Transmission Date: 20050107
  Serious: No
  Sender: FDA-Public Use
  Company Number: PHEH2004US01586

PATIENT
  Age: 73 Year
  Sex: Female
  Weight: 69.4 kg

DRUGS (1)
  1. ELIDEL [Suspect]
     Indication: ECZEMA
     Dosage: TOPICAL
     Route: 061
     Dates: start: 20040128, end: 20040128

REACTIONS (2)
  - APPLICATION SITE BURNING [None]
  - VISION BLURRED [None]
